FAERS Safety Report 7134564-4 (Version None)
Quarter: 2010Q4

REPORT INFORMATION
  Report Type: 
  Country: None (occurrence: None)
  Receive Date: 20101129
  Receipt Date: 20101129
  Transmission Date: 20110411
  Serious: Yes (Life-Threatening, Other)
  Sender: FDA-Public Use
  Company Number: None

PATIENT
  Age: 71 Year
  Sex: Male
  Weight: 90.7194 kg

DRUGS (2)
  1. LORAZEPAM [Suspect]
     Indication: ANXIETY
     Dosage: .5MG PRN EVERY OTHER NIGHT ORAL 047 (LAST 3 YEARS,  MORE SINCE 9/8/10)
     Route: 048
  2. LORAZEPAM [Suspect]
     Indication: INSOMNIA
     Dosage: .5MG PRN EVERY OTHER NIGHT ORAL 047 (LAST 3 YEARS,  MORE SINCE 9/8/10)
     Route: 048

REACTIONS (10)
  - AGITATION [None]
  - BALANCE DISORDER [None]
  - DEPRESSION [None]
  - DIZZINESS [None]
  - ERECTILE DYSFUNCTION [None]
  - FATIGUE [None]
  - HEADACHE [None]
  - INSOMNIA [None]
  - NAUSEA [None]
  - SUICIDAL IDEATION [None]
